FAERS Safety Report 5324002-6 (Version None)
Quarter: 2007Q2

REPORT INFORMATION
  Report Type: 
  Country: None (occurrence: None)
  Receive Date: 20070509
  Receipt Date: 20070509
  Transmission Date: 20071010
  Serious: Yes (Hospitalization)
  Sender: FDA-Public Use
  Company Number: None

PATIENT
  Age: 62 Year
  Sex: Male

DRUGS (3)
  1. DEXAMETHASONE 0.5MG TAB [Suspect]
     Indication: LUNG NEOPLASM MALIGNANT
     Dosage: 4MG  PO  QID
     Route: 048
     Dates: start: 20070217, end: 20070320
  2. DEXAMETHASONE 0.5MG TAB [Suspect]
     Indication: METASTASES TO CENTRAL NERVOUS SYSTEM
     Dosage: 4MG  PO  QID
     Route: 048
     Dates: start: 20070217, end: 20070320
  3. KEPPRA [Concomitant]

REACTIONS (1)
  - BLOOD GLUCOSE INCREASED [None]
